FAERS Safety Report 15216052 (Version 1)
Quarter: 2018Q3

REPORT INFORMATION
  Report Type: Spontaneous
  Country: US (occurrence: US)
  Receive Date: 20180703
  Receipt Date: 20180703
  Transmission Date: 20181010
  Serious: Yes (Disabling)
  Sender: FDA-Public Use
  Company Number: None

PATIENT
  Age: 32 Year
  Sex: Female
  Weight: 77.11 kg

DRUGS (1)
  1. MIRENA [Suspect]
     Active Substance: LEVONORGESTREL
     Indication: CONTRACEPTION

REACTIONS (8)
  - Hyperacusis [None]
  - Head discomfort [None]
  - Eye pain [None]
  - Visual field defect [None]
  - Migraine [None]
  - Drug ineffective [None]
  - Photophobia [None]
  - Visual impairment [None]

NARRATIVE: CASE EVENT DATE: 20170214
